FAERS Safety Report 21924135 (Version 2)
Quarter: 2023Q1

REPORT INFORMATION
  Report Type: Spontaneous
  Country: RU (occurrence: RU)
  Receive Date: 20230130
  Receipt Date: 20230209
  Transmission Date: 20230418
  Serious: Yes (Hospitalization)
  Sender: FDA-Public Use
  Company Number: RU-drreddys-LIT/RUS/23/0160392

PATIENT
  Age: 70 Year
  Sex: Male

DRUGS (4)
  1. CETIRIZINE [Suspect]
     Active Substance: CETIRIZINE HYDROCHLORIDE
     Indication: Epidermolysis bullosa
     Route: 048
  2. PREDNISONE [Concomitant]
     Active Substance: PREDNISONE
     Indication: Product used for unknown indication
     Dosage: 1/4 TABLET IN 2 MONTHS
  3. ASPIRIN [Concomitant]
     Active Substance: ASPIRIN
     Indication: Hypertension
  4. MAGNESIUM HYDROXIDE [Concomitant]
     Active Substance: MAGNESIUM HYDROXIDE
     Indication: Hypertension

REACTIONS (10)
  - Condition aggravated [Recovering/Resolving]
  - Dyspnoea [Recovering/Resolving]
  - Skin erosion [Recovering/Resolving]
  - Feeling hot [Recovering/Resolving]
  - Oral mucosa erosion [Recovering/Resolving]
  - Acute myocardial infarction [Recovering/Resolving]
  - Pemphigus [Recovering/Resolving]
  - Usher^s syndrome [Recovering/Resolving]
  - Epidermolysis bullosa [Recovering/Resolving]
  - Pruritus [Recovering/Resolving]
